FAERS Safety Report 5909382-2 (Version None)
Quarter: 2008Q4

REPORT INFORMATION
  Report Type: 
  Country: None (occurrence: None)
  Receive Date: 20081006
  Receipt Date: 20080911
  Transmission Date: 20090506
  Serious: No
  Sender: FDA-Public Use
  Company Number: US-B.I. PHARMACEUTICALS,INC./RIDGEFIELD-2007-BP-07077BP

PATIENT
  Sex: Female

DRUGS (9)
  1. MIRAPEX [Suspect]
     Indication: RESTLESS LEGS SYNDROME
     Dosage: 4.5MG
     Dates: start: 20010901, end: 20040101
  2. MIRAPEX [Suspect]
     Dosage: 1.5MG
     Dates: start: 20001201, end: 20010901
  3. MIRAPEX [Suspect]
     Dosage: .75MG
     Dates: start: 20000101, end: 20001201
  4. ZOCOR [Concomitant]
     Indication: BLOOD CHOLESTEROL INCREASED
     Dosage: 80MG
     Dates: start: 20010906
  5. ESTRATEST [Concomitant]
     Dates: start: 20010101
  6. MOTRIN [Concomitant]
     Dates: start: 20010906
  7. CLONAZEPAM [Concomitant]
     Indication: SLEEP DISORDER
     Dosage: 1MG
     Dates: start: 20010906
  8. SINEMET [Concomitant]
     Dates: start: 20010525, end: 20010731
  9. SINEMET [Concomitant]
     Dates: start: 20010731

REACTIONS (4)
  - ANXIETY [None]
  - DEPRESSION [None]
  - PATHOLOGICAL GAMBLING [None]
  - STRESS [None]
